FAERS Safety Report 5479808-X (Version None)
Quarter: 2007Q4

REPORT INFORMATION
  Report Type: 
  Country: None (occurrence: None)
  Receive Date: 20071008
  Receipt Date: 20071008
  Transmission Date: 20080405
  Serious: Yes (Other)
  Sender: FDA-Public Use
  Company Number: US-SHR-US-2007-031469

PATIENT
  Age: 36 Year
  Sex: Female
  Weight: 77 kg

DRUGS (1)
  1. MIRENA [Suspect]
     Indication: CONTRACEPTION
     Dosage: 20 A?G/DAY, CONT
     Route: 015
     Dates: start: 20040520, end: 20070403

REACTIONS (4)
  - ARTHRALGIA [None]
  - EPILEPTIC AURA [None]
  - TEMPORAL LOBE EPILEPSY [None]
  - VAGINAL HAEMORRHAGE [None]
